FAERS Safety Report 9502412 (Version 1)
Quarter: 2013Q3

REPORT INFORMATION
  Report Type: Spontaneous
  Country: DE (occurrence: DE)
  Receive Date: 20130906
  Receipt Date: 20130906
  Transmission Date: 20140515
  Serious: Yes (Death, Life-Threatening, Hospitalization)
  Sender: FDA-Public Use
  Company Number: DE-ROCHE-1269463

PATIENT
  Age: 53 Year
  Sex: Male
  Weight: 134 kg

DRUGS (7)
  1. DIAZEPAM [Suspect]
     Indication: PRODUCT USED FOR UNKNOWN INDICATION
     Dosage: 30-50 MG/DAY
     Route: 048
     Dates: start: 20011004, end: 20011012
  2. HALDOL [Suspect]
     Indication: PRODUCT USED FOR UNKNOWN INDICATION
     Dosage: 40 - 50 MG/DAY
     Route: 048
     Dates: start: 20011004, end: 20011012
  3. CIATYL [Suspect]
     Indication: PRODUCT USED FOR UNKNOWN INDICATION
     Dosage: REPORTED AS: CIATYL-Z ACUPHASE
     Route: 030
     Dates: start: 20011005, end: 20011005
  4. CIATYL [Suspect]
     Route: 030
     Dates: start: 20011010
  5. NEUROCIL [Suspect]
     Indication: PRODUCT USED FOR UNKNOWN INDICATION
     Route: 030
     Dates: start: 20011010, end: 20011010
  6. NEUROCIL [Suspect]
     Route: 048
     Dates: start: 20011011
  7. DYTIDE H [Concomitant]
     Route: 065
     Dates: start: 20011007, end: 20011012

REACTIONS (3)
  - Cardiopulmonary failure [Fatal]
  - Pulmonary embolism [Fatal]
  - Pneumonia [Recovering/Resolving]
